FAERS Safety Report 6026032-8 (Version None)
Quarter: 2008Q4

REPORT INFORMATION
  Report Type: 
  Country: None (occurrence: None)
  Receive Date: 20081230
  Receipt Date: 20081215
  Transmission Date: 20090506
  Serious: Yes (Hospitalization)
  Sender: FDA-Public Use
  Company Number: KV200801129

PATIENT
  Age: 79 Year
  Sex: Male

DRUGS (5)
  1. MORPHINE SULFATE ER(MORPHINE SULFATE) [Suspect]
     Indication: NEURALGIA
     Dosage: 15 MG, BID,  ORAL
     Route: 048
     Dates: start: 20080301, end: 20080401
  2. ATENOLOL [Concomitant]
  3. LIPITOR [Concomitant]
  4. ATIVAN [Concomitant]
  5. IBUPROFEN [Concomitant]

REACTIONS (5)
  - DYSKINESIA [None]
  - HEADACHE [None]
  - PRODUCT QUALITY ISSUE [None]
  - VOMITING [None]
  - WEIGHT DECREASED [None]
